FAERS Safety Report 24887258 (Version 2)
Quarter: 2025Q1

REPORT INFORMATION
  Report Type: Report from Study
  Country: US (occurrence: US)
  Receive Date: 20250127
  Receipt Date: 20250313
  Transmission Date: 20250408
  Serious: Yes (Hospitalization, Other)
  Sender: ABBVIE
  Company Number: US-ABBVIE-6097862

PATIENT
  Sex: Female

DRUGS (1)
  1. LUMIGAN [Suspect]
     Active Substance: BIMATOPROST
     Indication: Product used for unknown indication
     Dosage: FORM STRENGTH:0.3MG/ML, 1 DROP EACH EYE DAILY
     Route: 047

REACTIONS (8)
  - Head injury [Unknown]
  - Head discomfort [Unknown]
  - Gait disturbance [Not Recovered/Not Resolved]
  - Surgical failure [Not Recovered/Not Resolved]
  - Amnesia [Unknown]
  - Eye disorder [Not Recovered/Not Resolved]
  - Dehydration [Unknown]
  - Loss of consciousness [Recovered/Resolved]
